FAERS Safety Report 6911160-2 (Version None)
Quarter: 2010Q3

REPORT INFORMATION
  Report Type: 
  Country: None (occurrence: None)
  Receive Date: 20100806
  Receipt Date: 20100802
  Transmission Date: 20110219
  Serious: Yes (Hospitalization)
  Sender: FDA-Public Use
  Company Number: FR-MERCK-1008FRA00001

PATIENT
  Age: 70 Year
  Sex: Male

DRUGS (5)
  1. EMEND [Suspect]
     Route: 048
     Dates: start: 20100223
  2. EMEND [Suspect]
     Route: 048
     Dates: start: 20100401
  3. DETICENE [Suspect]
     Indication: METASTATIC MALIGNANT MELANOMA
     Route: 042
     Dates: start: 20100223, end: 20100223
  4. DETICENE [Suspect]
     Route: 042
     Dates: start: 20100401, end: 20100401
  5. AUGMENTIN '125' [Suspect]
     Indication: BRONCHITIS
     Route: 048
     Dates: start: 20100301, end: 20100301

REACTIONS (2)
  - RASH [None]
  - TUBULOINTERSTITIAL NEPHRITIS [None]
